FAERS Safety Report 5026651-1 (Version None)
Quarter: 2006Q2

REPORT INFORMATION
  Report Type: 
  Country: None (occurrence: None)
  Receive Date: 20060615
  Receipt Date: 20060614
  Transmission Date: 20061013
  Serious: Yes (Hospitalization)
  Sender: FDA-Public Use
  Company Number: US-GLAXOSMITHKLINE-A0609006A

PATIENT
  Sex: Female

DRUGS (7)
  1. LOTRONEX [Suspect]
     Indication: DRUG USE FOR UNKNOWN INDICATION
     Dosage: 2TAB PER DAY
     Route: 048
     Dates: start: 20060201, end: 20060515
  2. DILAUDID [Concomitant]
  3. PHENERGAN HCL [Concomitant]
  4. PROTONIX [Concomitant]
  5. VALIUM [Concomitant]
  6. POTASSIUM [Concomitant]
  7. UNSPECIFIED MEDICATION [Concomitant]

REACTIONS (3)
  - PYREXIA [None]
  - RASH [None]
  - URTICARIA [None]
